FAERS Safety Report 6440984-3 (Version None)
Quarter: 2009Q4

REPORT INFORMATION
  Report Type: 
  Country: None (occurrence: None)
  Receive Date: 20091116
  Receipt Date: 20091103
  Transmission Date: 20100525
  Serious: Yes (Hospitalization)
  Sender: FDA-Public Use
  Company Number: GB-ROCHE-666575

PATIENT
  Age: 64 Year
  Sex: Male

DRUGS (1)
  1. TAMIFLU [Suspect]
     Indication: DRUG USE FOR UNKNOWN INDICATION
     Route: 065

REACTIONS (3)
  - COMA SCALE ABNORMAL [None]
  - CONFUSIONAL STATE [None]
  - HYPOTHERMIA [None]
